FAERS Safety Report 9292211 (Version 1)
Quarter: 2013Q2

REPORT INFORMATION
  Report Type: Spontaneous
  Country: DE (occurrence: DE)
  Receive Date: 20130516
  Receipt Date: 20130516
  Transmission Date: 20140414
  Serious: Yes (Hospitalization)
  Sender: FDA-Public Use
  Company Number: DE-MERCK-1305DEU002900

PATIENT
  Age: 63 Year
  Sex: Female
  Weight: 75 kg

DRUGS (4)
  1. VELMETIA [Suspect]
     Indication: DIABETES MELLITUS
     Dosage: UNK
     Route: 048
     Dates: start: 20130408
  2. VELMETIA [Suspect]
     Dosage: UNK
     Route: 048
     Dates: end: 2011
  3. LEVEMIR [Concomitant]
  4. INSULIN [Concomitant]

REACTIONS (3)
  - Adverse event [Unknown]
  - Diabetes mellitus [Recovering/Resolving]
  - Weight decreased [Unknown]
